FAERS Safety Report 5738081-5 (Version None)
Quarter: 2008Q2

REPORT INFORMATION
  Report Type: 
  Country: None (occurrence: None)
  Receive Date: 20080514
  Receipt Date: 20080509
  Transmission Date: 20081010
  Serious: Yes (Hospitalization)
  Sender: FDA-Public Use
  Company Number: FR-ELI_LILLY_AND_COMPANY-FR200805002071

PATIENT
  Age: 50 Year
  Sex: Female

DRUGS (2)
  1. HUMALOG [Suspect]
     Indication: DIABETES MELLITUS
     Route: 058
  2. LANTUS [Concomitant]
     Indication: DIABETES MELLITUS

REACTIONS (3)
  - HYPOGLYCAEMIA [None]
  - INJURY [None]
  - LOSS OF CONSCIOUSNESS [None]
